FAERS Safety Report 9207298 (Version 1)
Quarter: 2013Q1

REPORT INFORMATION
  Report Type: Spontaneous
  Country: US (occurrence: None)
  Receive Date: 20120803
  Receipt Date: 20120803
  Transmission Date: 20140127
  Serious: Yes (Hospitalization)
  Sender: FDA-Public Use
  Company Number: 2012SP013826

PATIENT
  Age: 52 Year
  Sex: Female

DRUGS (1)
  1. INTRON A [Suspect]
     Indication: METASTATIC OCULAR MELANOMA
     Route: 058

REACTIONS (1)
  - Stevens-Johnson syndrome [None]
